FAERS Safety Report 25528215 (Version 2)
Quarter: 2025Q3

REPORT INFORMATION
  Report Type: Spontaneous
  Country: EU (occurrence: EU)
  Receive Date: 20250708
  Receipt Date: 20250930
  Transmission Date: 20251021
  Serious: Yes (Hospitalization)
  Sender: RANBAXY
  Company Number: EU-AFSSAPS-BX2025000373

PATIENT
  Age: 56 Year
  Sex: Male
  Weight: 61 kg

DRUGS (2)
  1. GEMCITABINE [Suspect]
     Active Substance: GEMCITABINE
     Indication: Squamous cell carcinoma
     Route: 040
     Dates: start: 20250205, end: 20250212
  2. XELODA [Suspect]
     Active Substance: CAPECITABINE
     Indication: Squamous cell carcinoma
     Route: 048
     Dates: start: 20250205, end: 20250217

REACTIONS (2)
  - Hepatitis [Recovering/Resolving]
  - Pancytopenia [Recovering/Resolving]

NARRATIVE: CASE EVENT DATE: 20250217
